FAERS Safety Report 24981273 (Version 1)
Quarter: 2025Q1

REPORT INFORMATION
  Report Type: Spontaneous
  Country: TR (occurrence: TR)
  Receive Date: 20250218
  Receipt Date: 20250218
  Transmission Date: 20250409
  Serious: Yes (Other)
  Sender: PFIZER
  Company Number: TR-PFIZER INC-PV202500017154

PATIENT
  Age: 218 Month
  Sex: Male
  Weight: 88 kg

DRUGS (3)
  1. CABERGOLINE [Suspect]
     Active Substance: CABERGOLINE
     Indication: Prolactin-producing pituitary tumour
  2. CABERGOLINE [Suspect]
     Active Substance: CABERGOLINE
     Dosage: 0.75 MG, WEEKLY
  3. CABERGOLINE [Suspect]
     Active Substance: CABERGOLINE
     Dosage: 1.5 MG, WEEKLY

REACTIONS (1)
  - Gambling disorder [Recovered/Resolved]
